FAERS Safety Report 14049091 (Version 8)
Quarter: 2018Q3

REPORT INFORMATION
  Report Type: Report from Study
  Country: RU (occurrence: RU)
  Receive Date: 20171005
  Receipt Date: 20180823
  Transmission Date: 20181010
  Serious: Yes (Life-Threatening, Hospitalization, Other)
  Sender: FDA-Public Use
  Company Number: RU-B.I. PHARMACEUTICALS,INC./RIDGEFIELD-2017-BI-049816

PATIENT
  Age: 54 Year
  Sex: Male
  Weight: 75 kg

DRUGS (10)
  1. FRAXIPARIN [Concomitant]
     Active Substance: NADROPARIN CALCIUM
     Indication: EMBOLISM
     Dosage: TOTAL DAILY DOSE: 0.6
     Route: 058
     Dates: start: 20170906, end: 20171010
  2. PEMETREXED. [Concomitant]
     Active Substance: PEMETREXED
     Indication: CHEMOTHERAPY
     Route: 042
     Dates: start: 20170818
  3. PEMETREXED. [Concomitant]
     Active Substance: PEMETREXED
     Dosage: TOTAL DAILY DOSE: 985MG\M2
     Route: 042
     Dates: start: 20171201, end: 20171201
  4. CISPLATIN. [Concomitant]
     Active Substance: CISPLATIN
     Route: 042
     Dates: start: 20171201, end: 20171201
  5. MERONEM [Concomitant]
     Active Substance: MEROPENEM
     Indication: PNEUMONIA
  6. MERONEM [Concomitant]
     Active Substance: MEROPENEM
     Indication: EMBOLISM
     Route: 065
     Dates: start: 20170906, end: 20170916
  7. PEMETREXED. [Concomitant]
     Active Substance: PEMETREXED
     Indication: PLEURAL MESOTHELIOMA MALIGNANT
     Dosage: TOTAL DAILY DOSE: 985MG\M2
     Route: 042
     Dates: start: 20170728, end: 20170818
  8. CISPLATIN. [Concomitant]
     Active Substance: CISPLATIN
     Indication: PLEURAL MESOTHELIOMA MALIGNANT
     Route: 042
     Dates: start: 20170728, end: 20170818
  9. BIBF 1120 [Suspect]
     Active Substance: NINTEDANIB
     Indication: PLEURAL MESOTHELIOMA MALIGNANT
     Route: 048
     Dates: start: 20170729, end: 20170906
  10. CISPLATIN. [Concomitant]
     Active Substance: CISPLATIN
     Indication: CHEMOTHERAPY
     Route: 042
     Dates: start: 20170818

REACTIONS (2)
  - Pulmonary embolism [Recovered/Resolved]
  - Pericardial effusion [Recovered/Resolved]

NARRATIVE: CASE EVENT DATE: 20170907
